FAERS Safety Report 4421876-8 (Version None)
Quarter: 2004Q3

REPORT INFORMATION
  Report Type: 
  Country: None (occurrence: None)
  Receive Date: 20040804
  Receipt Date: 20040722
  Transmission Date: 20050211
  Serious: Yes (Other)
  Sender: FDA-Public Use
  Company Number: 2004049742

PATIENT

DRUGS (2)
  1. GEODON [Suspect]
     Indication: ILL-DEFINED DISORDER
  2. NARDIL [Suspect]
     Indication: ILL-DEFINED DISORDER

REACTIONS (1)
  - SEROTONIN SYNDROME [None]
